FAERS Safety Report 4625667-4 (Version None)
Quarter: 2005Q1

REPORT INFORMATION
  Report Type: 
  Country: None (occurrence: None)
  Receive Date: 20050330
  Receipt Date: 20050309
  Transmission Date: 20050727
  Serious: Yes (Death)
  Sender: FDA-Public Use
  Company Number: US_0503114108

PATIENT
  Sex: Female

DRUGS (1)
  1. CYMBALTA [Suspect]
     Indication: DEPRESSION
     Dosage: 60 MG/2 DAY
     Dates: start: 20050101, end: 20050101

REACTIONS (1)
  - ACUTE MYOCARDIAL INFARCTION [None]
